FAERS Safety Report 8273705-2 (Version None)
Quarter: 2012Q2

REPORT INFORMATION
  Report Type: 
  Country: None (occurrence: None)
  Receive Date: 20120411
  Receipt Date: 20120309
  Transmission Date: 20120825
  Serious: No
  Sender: FDA-Public Use
  Company Number: US-TEVA-327603USA

PATIENT
  Sex: Female
  Weight: 54.48 kg

DRUGS (3)
  1. NUVIGIL [Suspect]
     Indication: FATIGUE
     Dosage: 50 MILLIGRAM;
     Route: 048
     Dates: start: 20120307
  2. GLATIRAMER ACETATE [Concomitant]
     Indication: MULTIPLE SCLEROSIS
     Dosage: 20 MILLIGRAM;
     Route: 058
     Dates: start: 20110101
  3. ZOLPIDEM TARTRATE [Concomitant]
     Indication: SLEEP DISORDER
     Dosage: 10 MILLIGRAM;
     Route: 048

REACTIONS (4)
  - HYPERHIDROSIS [None]
  - DRY MOUTH [None]
  - OFF LABEL USE [None]
  - DRUG INEFFECTIVE [None]
